FAERS Safety Report 6547097-0 (Version None)
Quarter: 2010Q1

REPORT INFORMATION
  Report Type: 
  Country: None (occurrence: None)
  Receive Date: 20100122
  Receipt Date: 20100114
  Transmission Date: 20100710
  Serious: Yes (Life-Threatening, Hospitalization)
  Sender: FDA-Public Use
  Company Number: US-MERCK-0911USA03100

PATIENT
  Age: 48 Year
  Sex: Male
  Weight: 160 kg

DRUGS (14)
  1. JANUVIA [Suspect]
     Indication: DIABETES MELLITUS
     Route: 048
     Dates: start: 20091001, end: 20091026
  2. METFORMIN [Concomitant]
     Route: 065
  3. AMARYL [Concomitant]
     Route: 065
  4. LISINOPRIL [Concomitant]
     Route: 048
  5. ACTOS [Concomitant]
     Route: 065
     Dates: end: 20091101
  6. TRICOR [Concomitant]
     Route: 065
  7. ATENOLOL [Concomitant]
     Route: 065
  8. ASPIRIN [Concomitant]
     Route: 065
  9. ASPIRIN [Concomitant]
     Route: 065
  10. LASIX [Concomitant]
     Route: 065
  11. CARVEDILOL [Concomitant]
     Route: 065
  12. SIMVASTATIN [Concomitant]
     Route: 048
  13. WARFARIN [Concomitant]
     Route: 065
  14. OMEGA-3 MARINE TRIGLYCERIDES [Concomitant]
     Route: 065

REACTIONS (16)
  - AGITATION [None]
  - ASTHENIA [None]
  - ATRIAL FIBRILLATION [None]
  - CARDIAC FAILURE CONGESTIVE [None]
  - CONGESTIVE CARDIOMYOPATHY [None]
  - DYSPNOEA [None]
  - FATIGUE [None]
  - HYPOXIA [None]
  - INSOMNIA [None]
  - LIP BLISTER [None]
  - LIP EXFOLIATION [None]
  - MITRAL VALVE INCOMPETENCE [None]
  - MYOCARDIAL INFARCTION [None]
  - PERIODIC LIMB MOVEMENT DISORDER [None]
  - SLEEP APNOEA SYNDROME [None]
  - SLEEP DISORDER [None]
